FAERS Safety Report 9948297 (Version 1)
Quarter: 2014Q1

REPORT INFORMATION
  Report Type: Spontaneous
  Country: US (occurrence: None)
  Receive Date: 20140122
  Receipt Date: 20140122
  Transmission Date: 20141002
  Serious: No
  Sender: FDA-Public Use
  Company Number: AP356-00160-SPO-US

PATIENT
  Age: 39 Year
  Sex: Female
  Weight: 72.72 kg

DRUGS (3)
  1. BELVIQ (LORCASERIN HYDROCHLORIDE) [Suspect]
     Indication: WEIGHT DECREASED
     Route: 048
     Dates: start: 201307, end: 201309
  2. LISINOPRIL (LISINOPRIL) [Concomitant]
  3. SPIRONOLACTONE (SPIRONOLACTONE) [Concomitant]

REACTIONS (3)
  - Body temperature increased [None]
  - Dizziness [None]
  - Paraesthesia [None]
